FAERS Safety Report 14902236 (Version 3)
Quarter: 2018Q3

REPORT INFORMATION
  Report Type: Spontaneous
  Country: US (occurrence: US)
  Receive Date: 20180516
  Receipt Date: 20180711
  Transmission Date: 20181010
  Serious: Yes (Other)
  Sender: FDA-Public Use
  Company Number: US-JNJFOC-20180516335

PATIENT
  Age: 37 Year
  Sex: Female

DRUGS (7)
  1. LIPITOR [Concomitant]
     Active Substance: ATORVASTATIN CALCIUM
     Indication: HYPERLIPIDAEMIA
     Route: 048
  2. PREDNISONE. [Concomitant]
     Active Substance: PREDNISONE
     Indication: COLITIS ULCERATIVE
     Dosage: TAPER WITH FLARES
     Route: 048
  3. EFFEXOR [Concomitant]
     Active Substance: VENLAFAXINE HYDROCHLORIDE
     Indication: ANXIETY
     Route: 048
  4. ASACOL HD [Concomitant]
     Active Substance: MESALAMINE
     Route: 065
  5. DELZICOL [Concomitant]
     Active Substance: MESALAMINE
     Route: 065
  6. REMICADE [Suspect]
     Active Substance: INFLIXIMAB
     Indication: COLITIS ULCERATIVE
     Dosage: FOR 3?4 YEARS
     Route: 042
     Dates: start: 20141009
  7. CANASA [Concomitant]
     Active Substance: MESALAMINE
     Route: 065

REACTIONS (5)
  - Actinic keratosis [Not Recovered/Not Resolved]
  - Proctitis ulcerative [Unknown]
  - Skin papilloma [Not Recovered/Not Resolved]
  - Malignant melanoma [Not Recovered/Not Resolved]
  - Lentigo [Not Recovered/Not Resolved]

NARRATIVE: CASE EVENT DATE: 20170601
